FAERS Safety Report 8421948-7 (Version None)
Quarter: 2012Q2

REPORT INFORMATION
  Report Type: 
  Country: None (occurrence: None)
  Receive Date: 20120608
  Receipt Date: 20120531
  Transmission Date: 20120825
  Serious: Yes (Hospitalization, Other)
  Sender: FDA-Public Use
  Company Number: CA-GENZYME-THYM-1003259

PATIENT
  Sex: Male
  Weight: 94 kg

DRUGS (5)
  1. THYMOGLOBULIN [Suspect]
     Dosage: 2 MG/KG, QD
     Route: 042
     Dates: start: 20111026, end: 20111026
  2. THYMOGLOBULIN [Suspect]
     Dosage: 2 MG/KG, QD
     Route: 042
     Dates: start: 20111029, end: 20111029
  3. BACTRIM DS [Concomitant]
     Indication: PRODUCT USED FOR UNKNOWN INDICATION
     Dosage: 1 DF, 3X/W
  4. TACROLIMUS [Concomitant]
     Indication: PRODUCT USED FOR UNKNOWN INDICATION
     Dosage: 1 MG, BID
     Route: 065
  5. THYMOGLOBULIN [Suspect]
     Indication: PROPHYLAXIS AGAINST GRAFT VERSUS HOST DISEASE
     Dosage: 0.5 MG/KG, QD
     Route: 042
     Dates: start: 20111025, end: 20111025

REACTIONS (3)
  - TRANSIENT ISCHAEMIC ATTACK [None]
  - BUNDLE BRANCH BLOCK LEFT [None]
  - SINUS TACHYCARDIA [None]
